FAERS Safety Report 25699733 (Version 1)
Quarter: 2025Q3

REPORT INFORMATION
  Report Type: Report from Study
  Country: ZA (occurrence: ZA)
  Receive Date: 20250819
  Receipt Date: 20250819
  Transmission Date: 20251020
  Serious: Yes (Other)
  Sender: ALEXION PHARMACEUTICALS
  Company Number: ZA-AstraZeneca-CH-00932362A

PATIENT
  Age: 71 Year
  Sex: Male

DRUGS (8)
  1. BUDESONIDE\FORMOTEROL [Suspect]
     Active Substance: BUDESONIDE\FORMOTEROL
     Indication: Asthma
  2. Uromax [Concomitant]
     Indication: Prostatomegaly
  3. Urton [Concomitant]
  4. ASPIRIN [Concomitant]
     Active Substance: ASPIRIN
     Indication: Anticoagulant therapy
  5. SIMVASTATIN [Concomitant]
     Active Substance: SIMVASTATIN
     Indication: Blood cholesterol abnormal
  6. ALBUTEROL SULFATE [Concomitant]
     Active Substance: ALBUTEROL SULFATE
     Indication: Bronchospasm
  7. AMLODIPINE BESYLATE [Concomitant]
     Active Substance: AMLODIPINE BESYLATE
     Indication: Hypertension
  8. Annin co [Concomitant]
     Indication: Hypertension

REACTIONS (1)
  - Cerebrovascular accident [Unknown]
